FAERS Safety Report 4936550-9 (Version None)
Quarter: 2006Q1

REPORT INFORMATION
  Report Type: 
  Country: None (occurrence: None)
  Receive Date: 20060307
  Receipt Date: 20050829
  Transmission Date: 20060701
  Serious: Yes (Hospitalization)
  Sender: FDA-Public Use
  Company Number: US-MERCK-0508USA04841

PATIENT
  Age: 50 Year
  Sex: Female
  Weight: 73 kg

DRUGS (4)
  1. VIOXX [Suspect]
     Indication: PAIN
     Route: 048
     Dates: start: 19990101, end: 20020801
  2. VIOXX [Suspect]
     Route: 048
     Dates: start: 19990101, end: 20020801
  3. [THERAPY UNSPECIFIED] [Concomitant]
     Route: 065
  4. CELEBREX [Concomitant]
     Route: 065

REACTIONS (4)
  - ABDOMINAL PAIN [None]
  - FALL [None]
  - ROAD TRAFFIC ACCIDENT [None]
  - ULCER [None]
